FAERS Safety Report 6920603-X (Version None)
Quarter: 2010Q3

REPORT INFORMATION
  Report Type: 
  Country: None (occurrence: None)
  Receive Date: 20100812
  Receipt Date: 20100804
  Transmission Date: 20110219
  Serious: Yes (Other)
  Sender: FDA-Public Use
  Company Number: US-BRISTOL-MYERS SQUIBB COMPANY-15226525

PATIENT
  Age: 46 Year
  Sex: Male

DRUGS (3)
  1. ONGLYZA [Suspect]
     Dates: start: 20091101, end: 20100101
  2. GLUCOPHAGE [Suspect]
  3. ZOCOR [Suspect]

REACTIONS (1)
  - PANCREATIC CARCINOMA [None]
